FAERS Safety Report 9639443 (Version 1)
Quarter: 2013Q4

REPORT INFORMATION
  Report Type: Spontaneous
  Country: JP (occurrence: JP)
  Receive Date: 20131022
  Receipt Date: 20131022
  Transmission Date: 20140711
  Serious: Yes (Other)
  Sender: FDA-Public Use
  Company Number: JP-PFIZER INC-2013298047

PATIENT
  Sex: 0

DRUGS (1)
  1. AZULFIDINE EN [Suspect]
     Route: 048

REACTIONS (2)
  - Chromaturia [Unknown]
  - Urine ketone body present [Unknown]
